FAERS Safety Report 9157170 (Version 2)
Quarter: 2013Q1

REPORT INFORMATION
  Report Type: Spontaneous
  Country: US (occurrence: None)
  Receive Date: 20130212
  Receipt Date: 20130304
  Transmission Date: 20140127
  Serious: Yes (Hospitalization, Other)
  Sender: FDA-Public Use
  Company Number: AUR-APL-2013-01219

PATIENT
  Age: 61 Year
  Sex: Female

DRUGS (6)
  1. LEVOFLOXACIN (LEVOFLOXACIN) [Suspect]
     Indication: ARTHRITIS BACTERIAL
  2. METOPROLOL (METOPROLOL) [Suspect]
     Indication: PRODUCT USED FOR UNKNOWN INDICATION
  3. CEFEPIME (CEFEPIME) [Suspect]
     Indication: ARTHRITIS BACTERIAL
  4. TACROLIMUS (TACROLIMUS) [Concomitant]
  5. COUMADIN (COUMARIN) [Concomitant]
  6. DOCUSATE SODIUM (DOCUSATE SODIUM) [Concomitant]

REACTIONS (7)
  - Skin exfoliation [None]
  - Pruritus [None]
  - Erythema [None]
  - Eczema [None]
  - Dermatitis [None]
  - Rash macular [None]
  - Pseudolymphoma [None]
